FAERS Safety Report 6957287-0 (Version None)
Quarter: 2010Q3

REPORT INFORMATION
  Report Type: 
  Country: None (occurrence: None)
  Receive Date: 20100831
  Receipt Date: 20100430
  Transmission Date: 20110219
  Serious: Yes (Hospitalization, Other)
  Sender: FDA-Public Use
  Company Number: US-BAYER-200935949NA

PATIENT
  Age: 33 Year
  Sex: Female
  Weight: 132 kg

DRUGS (5)
  1. YAZ [Suspect]
     Indication: ORAL CONTRACEPTION
     Route: 048
     Dates: start: 20070726, end: 20071010
  2. NAPROXEN [Concomitant]
     Indication: ARTHRALGIA
  3. ORAL CONTRACEPTIVES [Concomitant]
  4. ATENOLOL [Concomitant]
     Dosage: UNIT DOSE: 50 MG
     Route: 065
  5. PAXIL [Concomitant]
     Route: 065

REACTIONS (7)
  - ARTHRALGIA [None]
  - DEEP VEIN THROMBOSIS [None]
  - MUSCLE TIGHTNESS [None]
  - OEDEMA PERIPHERAL [None]
  - PAIN [None]
  - PAIN IN EXTREMITY [None]
  - PHLEBITIS [None]
